FAERS Safety Report 20045487 (Version 3)
Quarter: 2022Q3

REPORT INFORMATION
  Report Type: Report from Study
  Country: CA (occurrence: CA)
  Receive Date: 20211108
  Receipt Date: 20220914
  Transmission Date: 20221026
  Serious: Yes (Hospitalization, Other)
  Sender: FDA-Public Use
  Company Number: CA-OTSUKA-2021_038254

PATIENT
  Sex: Male

DRUGS (1)
  1. ARIPIPRAZOLE [Suspect]
     Active Substance: ARIPIPRAZOLE
     Indication: Product used for unknown indication
     Dosage: 400 MG, MONTHLY
     Route: 030

REACTIONS (5)
  - Psychotic symptom [Unknown]
  - Soliloquy [Unknown]
  - Hallucination, visual [Unknown]
  - Hallucination, auditory [Not Recovered/Not Resolved]
  - Inappropriate schedule of product administration [Unknown]
